FAERS Safety Report 19979873 (Version 1)
Quarter: 2021Q4

REPORT INFORMATION
  Report Type: Spontaneous
  Country: NO (occurrence: NO)
  Receive Date: 20211021
  Receipt Date: 20211021
  Transmission Date: 20220303
  Serious: Yes (Other)
  Sender: FDA-Public Use
  Company Number: None

PATIENT
  Age: 74 Year
  Sex: Female

DRUGS (3)
  1. TECHNETIUM TC-99M SESTAMIBI [Suspect]
     Active Substance: TECHNETIUM TC-99M SESTAMIBI
     Dosage: 669 MBQ GIVEN IN 0.6 ML OVER 15 MINUTES (09.55-10.10) VIA PERIPHERAL VENOUS CATHETER IN RIGHT ELBOW
     Route: 042
     Dates: start: 20210915, end: 20210915
  2. TECHNETIUM TC-99M SODIUM PERTECHNETATE [Suspect]
     Active Substance: TECHNETIUM TC-99M SODIUM PERTECHNETATE
     Dosage: 669 MBQ GIVEN IN 0.6 ML OVER 15 MINUTES (09.55-10.10) VIA PERIPHERAL VENOUS CATHETER IN RIGHT ELBOW
     Route: 042
     Dates: start: 20210915, end: 20210915
  3. DIAZEPAM [Concomitant]
     Active Substance: DIAZEPAM
     Dosage: GIVEN HALF AN HOUR BEFORE THE SCAN.
     Route: 048
     Dates: start: 20210915, end: 20210915

REACTIONS (10)
  - Cognitive disorder [Recovering/Resolving]
  - Fatigue [Recovering/Resolving]
  - Musculoskeletal stiffness [Recovering/Resolving]
  - Balance disorder [Recovering/Resolving]
  - Speech disorder [Recovering/Resolving]
  - Muscle spasms [Recovering/Resolving]
  - Pain [Recovering/Resolving]
  - Nausea [Recovering/Resolving]
  - Diarrhoea [Recovering/Resolving]
  - Hemiparesis [Recovering/Resolving]

NARRATIVE: CASE EVENT DATE: 20210915
